FAERS Safety Report 23400412 (Version 1)
Quarter: 2024Q1

REPORT INFORMATION
  Report Type: Spontaneous
  Country: US (occurrence: US)
  Receive Date: 20240115
  Receipt Date: 20240115
  Transmission Date: 20240410
  Serious: No
  Sender: FDA-Public Use
  Company Number: US-OPELLA-2024OHG001056

PATIENT

DRUGS (1)
  1. GOLD BOND MEDICATED ECZEMA RELIEF [Suspect]
     Active Substance: OATMEAL
     Indication: Eczema

REACTIONS (1)
  - Application site pain [Unknown]
